FAERS Safety Report 7363691-1 (Version None)
Quarter: 2011Q1

REPORT INFORMATION
  Report Type: 
  Country: None (occurrence: None)
  Receive Date: 20110321
  Receipt Date: 20101203
  Transmission Date: 20110831
  Serious: No
  Sender: FDA-Public Use
  Company Number: A0897658A

PATIENT

DRUGS (1)
  1. PROMACTA [Suspect]
     Route: 048

REACTIONS (1)
  - VISUAL IMPAIRMENT [None]
